FAERS Safety Report 26007284 (Version 1)
Quarter: 2025Q4

REPORT INFORMATION
  Report Type: Spontaneous
  Country: CN (occurrence: CN)
  Receive Date: 20251106
  Receipt Date: 20251106
  Transmission Date: 20260117
  Serious: Yes (Death, Hospitalization, Other)
  Sender: AMGEN
  Company Number: CN-AMGEN-CHNSP2025218400

PATIENT

DRUGS (1)
  1. PROLIA [Suspect]
     Active Substance: DENOSUMAB
     Indication: Osteoporotic fracture
     Dosage: 60 MILLIGRAM (PER EACH INJECTION OVER A PERIOD OF THREE YEARS)
     Route: 058

REACTIONS (3)
  - Death [Fatal]
  - Unevaluable event [Unknown]
  - Hip fracture [Unknown]
